FAERS Safety Report 8746254 (Version 5)
Quarter: 2012Q4

REPORT INFORMATION
  Report Type: Report from Study
  Country: US (occurrence: US)
  Receive Date: 20120827
  Receipt Date: 20121010
  Transmission Date: 20130627
  Serious: Yes (Hospitalization)
  Sender: FDA-Public Use
  Company Number: US-JNJFOC-20120810182

PATIENT
  Age: 14 Year
  Sex: Female
  Weight: 44.7 kg

DRUGS (2)
  1. REMICADE [Suspect]
     Indication: ANAL FISTULA
     Route: 042
     Dates: start: 2012
  2. REMICADE [Suspect]
     Indication: ANAL FISTULA
     Route: 042
     Dates: start: 20110812, end: 2012

REACTIONS (2)
  - Anal abscess [Recovered/Resolved with Sequelae]
  - Anal fistula [Recovered/Resolved with Sequelae]
